FAERS Safety Report 7821278-8 (Version None)
Quarter: 2011Q4

REPORT INFORMATION
  Report Type: 
  Country: None (occurrence: None)
  Receive Date: 20111018
  Receipt Date: 20110415
  Transmission Date: 20120403
  Serious: No
  Sender: FDA-Public Use
  Company Number: US-ASTRAZENECA-2011SE02606

PATIENT
  Age: 59 Year
  Sex: Female
  Weight: 73.5 kg

DRUGS (6)
  1. SYMBICORT [Suspect]
     Dosage: 80/4.5 ONE PUFF
     Route: 055
     Dates: start: 20101014
  2. SYMBICORT [Suspect]
     Indication: CHRONIC OBSTRUCTIVE PULMONARY DISEASE
     Dosage: 160/4.55 MCG
     Route: 055
  3. BP MEDICATION [Concomitant]
  4. CHOLESTEROL MEDICATIONS [Concomitant]
  5. REFLUX MED [Concomitant]
  6. ANGINA MED [Concomitant]

REACTIONS (4)
  - PHARYNGEAL OEDEMA [None]
  - DYSPHONIA [None]
  - PALATAL OEDEMA [None]
  - THROAT TIGHTNESS [None]
